FAERS Safety Report 9789208 (Version 1)
Quarter: 2013Q4

REPORT INFORMATION
  Report Type: Spontaneous
  Country: GB (occurrence: GB)
  Receive Date: 20131230
  Receipt Date: 20131230
  Transmission Date: 20140711
  Serious: Yes (Other)
  Sender: FDA-Public Use
  Company Number: GB-ACTAVIS-2013-23478

PATIENT
  Age: 29 Year
  Sex: Male
  Weight: 72 kg

DRUGS (4)
  1. TRAMADOL (UNKNOWN) [Suspect]
     Indication: BACK PAIN
     Dosage: 50 MG, TID
     Route: 065
     Dates: start: 20131120
  2. AMITRIPTYLINE [Concomitant]
     Indication: INSOMNIA
     Dosage: 25 MG, UNKNOWN
     Route: 065
     Dates: start: 201004
  3. DIAZEPAM [Concomitant]
     Indication: ANXIETY
     Dosage: 10 MG, UNKNOWN
     Route: 065
     Dates: start: 201108
  4. CO-CODAMOL [Concomitant]
     Indication: PAIN
     Dosage: 30/500 MG
     Route: 065
     Dates: start: 201004

REACTIONS (4)
  - Somnolence [Recovering/Resolving]
  - Fatigue [Recovering/Resolving]
  - Depressed level of consciousness [Recovering/Resolving]
  - Apathy [Recovering/Resolving]
